FAERS Safety Report 8489501-7 (Version None)
Quarter: 2012Q3

REPORT INFORMATION
  Report Type: 
  Country: None (occurrence: None)
  Receive Date: 20120705
  Receipt Date: 20120625
  Transmission Date: 20120928
  Serious: Yes (Disabling)
  Sender: FDA-Public Use
  Company Number: AR-CELGENEUS-007-21880-12041671

PATIENT
  Sex: Male

DRUGS (8)
  1. PREGABALIN [Concomitant]
     Dosage: 75 MILLIGRAM
     Route: 048
     Dates: start: 20070401
  2. RISEDRONATE SODIUM [Concomitant]
     Indication: OSTEOPENIA
     Dosage: 1 TABLET
     Route: 048
     Dates: start: 20111201
  3. DIOSMIN [Concomitant]
     Indication: VENOUS INSUFFICIENCY
     Dosage: 500 MILLIGRAM
     Route: 048
     Dates: start: 20120201
  4. REVLIMID [Suspect]
     Dates: start: 20100101
  5. ALPRAZOLAM [Concomitant]
     Route: 065
  6. CALCIUM [Concomitant]
     Indication: OSTEOPENIA
     Dosage: 400 MILLIGRAM
     Route: 048
  7. VITAMIN D [Concomitant]
     Dosage: 250000 IU (INTERNATIONAL UNIT)
     Route: 048
     Dates: start: 20111201
  8. REVLIMID [Suspect]
     Indication: MULTIPLE MYELOMA
     Dosage: 5 MILLIGRAM
     Route: 048
     Dates: start: 20091026

REACTIONS (2)
  - PEYRONIE'S DISEASE [None]
  - FIBROSIS [None]
